FAERS Safety Report 11168085 (Version 1)
Quarter: 2015Q2

REPORT INFORMATION
  Report Type: Spontaneous
  Country: US (occurrence: None)
  Receive Date: 20150604
  Receipt Date: 20150604
  Transmission Date: 20150821
  Serious: Yes (Life-Threatening)
  Sender: FDA-Public Use
  Company Number: None

PATIENT
  Age: 85 Year
  Sex: Female
  Weight: 63.6 kg

DRUGS (1)
  1. ALTEPLASE [Suspect]
     Active Substance: ALTEPLASE
     Indication: ISCHAEMIC STROKE
     Dosage: 57.1MG  BOLUS + DRIP  IV?1/26/15  (1 HR)
     Route: 041
     Dates: start: 20150126

REACTIONS (1)
  - Angioedema [None]

NARRATIVE: CASE EVENT DATE: 20150126
